FAERS Safety Report 5571165-3 (Version None)
Quarter: 2007Q4

REPORT INFORMATION
  Report Type: 
  Country: None (occurrence: None)
  Receive Date: 20071221
  Receipt Date: 20061204
  Transmission Date: 20080405
  Serious: No
  Sender: FDA-Public Use
  Company Number: A0630483A

PATIENT
  Age: 47 Year
  Sex: Female
  Weight: 83.2 kg

DRUGS (5)
  1. FLONASE [Suspect]
     Indication: DRUG USE FOR UNKNOWN INDICATION
     Route: 065
     Dates: start: 20060101
  2. BYETTA [Suspect]
     Route: 058
     Dates: start: 20060801
  3. LORATADINE [Suspect]
     Indication: DRUG USE FOR UNKNOWN INDICATION
     Route: 065
     Dates: start: 20061001, end: 20060101
  4. AMARYL [Concomitant]
     Dates: start: 20010101
  5. ACTOS [Concomitant]
     Dates: start: 20010101

REACTIONS (8)
  - BLOOD GLUCOSE FLUCTUATION [None]
  - INJECTION SITE IRRITATION [None]
  - INJECTION SITE URTICARIA [None]
  - MULTIPLE ALLERGIES [None]
  - NASAL CONGESTION [None]
  - NASOPHARYNGITIS [None]
  - PHARYNGOLARYNGEAL PAIN [None]
  - SINUSITIS [None]
